FAERS Safety Report 8762846 (Version 3)
Quarter: 2020Q3

REPORT INFORMATION
  Report Type: Spontaneous
  Country: US (occurrence: US)
  Receive Date: 20120829
  Receipt Date: 20200831
  Transmission Date: 20201103
  Serious: No
  Sender: FDA-Public Use
  Company Number: US-PFIZER INC-2012208622

PATIENT
  Age: 67 Year
  Sex: Male
  Weight: 81.63 kg

DRUGS (3)
  1. DILANTIN [Suspect]
     Active Substance: PHENYTOIN
     Indication: SEIZURE
     Dosage: 400 MG, DAILY (A TOTAL DOSE OF 4 CAPSULES OF 100MG IN A DAY)
     Route: 048
  2. DILANTIN [Suspect]
     Active Substance: PHENYTOIN
     Dosage: 100 MG DAILY
     Route: 048
  3. DILANTIN [Suspect]
     Active Substance: PHENYTOIN
     Dosage: 400 MG, DAILY (A TOTAL DOSE OF 4 CAPSULES OF 100MG IN A DAY)
     Route: 048

REACTIONS (4)
  - Limb discomfort [Unknown]
  - Fluid retention [Unknown]
  - Peripheral swelling [Unknown]
  - Anticonvulsant drug level increased [Unknown]
